FAERS Safety Report 21056864 (Version 1)
Quarter: 2022Q3

REPORT INFORMATION
  Report Type: Spontaneous
  Country: US (occurrence: None)
  Receive Date: 20220707
  Receipt Date: 20220707
  Transmission Date: 20221027
  Serious: Yes (Other)
  Sender: FDA-Public Use
  Company Number: None

PATIENT
  Age: 38 Year
  Sex: Female
  Weight: 164.25 kg

DRUGS (13)
  1. PAXLOVID [Suspect]
     Active Substance: NIRMATRELVIR\RITONAVIR
     Indication: COVID-19
     Dosage: FREQUENCY : TWICE A DAY;?
     Route: 048
     Dates: start: 20220629, end: 20220703
  2. NEXIUM [Concomitant]
     Active Substance: ESOMEPRAZOLE MAGNESIUM
  3. HYDROCODONE [Concomitant]
     Active Substance: HYDROCODONE
  4. TIZANIDINE [Concomitant]
     Active Substance: TIZANIDINE
  5. LYRICA [Concomitant]
     Active Substance: PREGABALIN
  6. TOPIRAMATE [Concomitant]
     Active Substance: TOPIRAMATE
  7. LISINOPRIL [Concomitant]
     Active Substance: LISINOPRIL
  8. DULOXETINE [Concomitant]
  9. KETAMINE [Concomitant]
     Active Substance: KETAMINE
  10. ONDANSETRON [Concomitant]
     Active Substance: ONDANSETRON
  11. DEVICE [Concomitant]
     Active Substance: DEVICE
  12. ZYRTEC [Concomitant]
     Active Substance: CETIRIZINE HYDROCHLORIDE
  13. allergy drops [Concomitant]

REACTIONS (1)
  - COVID-19 [None]

NARRATIVE: CASE EVENT DATE: 20220707
